FAERS Safety Report 7949250-8 (Version None)
Quarter: 2011Q4

REPORT INFORMATION
  Report Type: 
  Country: None (occurrence: None)
  Receive Date: 20111129
  Receipt Date: 20111129
  Transmission Date: 20120403
  Serious: Yes (Hospitalization)
  Sender: FDA-Public Use
  Company Number: None

PATIENT
  Sex: Male
  Weight: 104 kg

DRUGS (1)
  1. CISPLATIN [Suspect]
     Dosage: 200 MG

REACTIONS (3)
  - DYSPHAGIA [None]
  - OROPHARYNGEAL PAIN [None]
  - DEHYDRATION [None]
